FAERS Safety Report 5578564-4 (Version None)
Quarter: 2007Q4

REPORT INFORMATION
  Report Type: 
  Country: None (occurrence: None)
  Receive Date: 20071231
  Receipt Date: 20071219
  Transmission Date: 20080405
  Serious: Yes (Life-Threatening, Hospitalization, Other)
  Sender: FDA-Public Use
  Company Number: AU-PFIZER INC-2007102260

PATIENT
  Sex: Female
  Weight: 125 kg

DRUGS (6)
  1. CHANTIX [Suspect]
     Indication: SMOKING CESSATION THERAPY
     Route: 048
  2. SPIRIVA [Concomitant]
     Indication: CHRONIC OBSTRUCTIVE PULMONARY DISEASE
  3. SERETIDE [Concomitant]
     Dosage: TEXT:250/25
  4. CRESTOR [Concomitant]
     Indication: LIPIDS INCREASED
  5. ENDEP [Concomitant]
  6. ZOLOFT [Concomitant]
     Indication: DEPRESSION

REACTIONS (1)
  - ANAPHYLACTIC REACTION [None]
